FAERS Safety Report 5401196-5 (Version None)
Quarter: 2007Q3

REPORT INFORMATION
  Report Type: 
  Country: None (occurrence: None)
  Receive Date: 20070726
  Receipt Date: 20070715
  Transmission Date: 20080115
  Serious: Yes (Life-Threatening, Other)
  Sender: FDA-Public Use
  Company Number: 07H-163-0312893-00

PATIENT
  Age: 2 Year
  Sex: Male
  Weight: 14 kg

DRUGS (4)
  1. KETAMINE HCL [Suspect]
     Indication: INDUCTION OF ANAESTHESIA
     Dosage: 5 MG, TWICE
  2. QUELICIN [Suspect]
     Indication: NEUROMUSCULAR BLOCKADE
  3. SEVOFLURANE [Suspect]
     Indication: INDUCTION OF ANAESTHESIA
     Dosage: INHALATION
     Route: 055
  4. RECOMBINANT HUMAN ACID ALPHA-GLUCOSIDASE (ACID ALPHA GLUCOSIDASE) [Concomitant]

REACTIONS (3)
  - BRADYCARDIA [None]
  - SUPRAVENTRICULAR TACHYCARDIA [None]
  - VENTRICULAR TACHYCARDIA [None]
